FAERS Safety Report 6818361-2 (Version None)
Quarter: 2010Q3

REPORT INFORMATION
  Report Type: 
  Country: None (occurrence: None)
  Receive Date: 20100706
  Receipt Date: 20080114
  Transmission Date: 20110219
  Serious: No
  Sender: FDA-Public Use
  Company Number: US-PFIZER INC-2008000373

PATIENT
  Age: 3 Year
  Sex: Male
  Weight: 16.6 kg

DRUGS (3)
  1. ZITHROMAX [Suspect]
     Indication: MYRINGITIS
     Dosage: 40 MG/ML
     Dates: start: 20071201, end: 20071201
  2. MOTRIN [Concomitant]
  3. TYLENOL [Concomitant]

REACTIONS (4)
  - DRUG HYPERSENSITIVITY [None]
  - EAR INFECTION [None]
  - ORAL DISORDER [None]
  - SALIVARY HYPERSECRETION [None]
